FAERS Safety Report 15012843 (Version 1)
Quarter: 2018Q2

REPORT INFORMATION
  Report Type: Spontaneous
  Country: ZA (occurrence: ZA)
  Receive Date: 20180614
  Receipt Date: 20180614
  Transmission Date: 20180711
  Serious: Yes (Hospitalization)
  Sender: FDA-Public Use
  Company Number: ZA-PFIZER INC-2018197262

PATIENT
  Age: 70 Year
  Sex: Male

DRUGS (5)
  1. ASPAVOR [Suspect]
     Active Substance: ATORVASTATIN
     Dosage: 40 MG, UNK
  2. ECOTRIN [Suspect]
     Active Substance: ASPIRIN
     Dosage: 81 MG, UNK
  3. UNAT [Suspect]
     Active Substance: TORSEMIDE
     Dosage: 10 MG, UNK
  4. ENAP [Suspect]
     Active Substance: ENALAPRIL
     Dosage: 10 MG, UNK
  5. CARLOC [Suspect]
     Active Substance: CARVEDILOL
     Dosage: 12.5 MG, UNK

REACTIONS (1)
  - Road traffic accident [Recovering/Resolving]

NARRATIVE: CASE EVENT DATE: 20180407
